FAERS Safety Report 10582573 (Version 1)
Quarter: 2014Q4

REPORT INFORMATION
  Report Type: Spontaneous
  Country: FR (occurrence: FR)
  Receive Date: 20141113
  Receipt Date: 20141113
  Transmission Date: 20150529
  Serious: Yes (Hospitalization)
  Sender: FDA-Public Use
  Company Number: FR-ASTRAZENECA-2014SE84253

PATIENT
  Age: 28046 Day
  Sex: Female

DRUGS (7)
  1. COVERSYL [Concomitant]
     Active Substance: PERINDOPRIL
  2. ARIMIDEX [Suspect]
     Active Substance: ANASTROZOLE
     Route: 048
     Dates: start: 20140305, end: 20140527
  3. ZOPICLONE [Concomitant]
     Active Substance: ZOPICLONE
  4. SERESTA [Suspect]
     Active Substance: OXAZEPAM
     Route: 048
     Dates: start: 2014, end: 20140527
  5. AVLOCARDYL [Concomitant]
     Active Substance: PROPRANOLOL HYDROCHLORIDE
  6. STRUCTUM [Concomitant]
     Active Substance: SODIUM CHONDROITIN SULFATE
  7. OROCAL D3 [Concomitant]
     Active Substance: CALCIUM CARBONATE\CHOLECALCIFEROL

REACTIONS (3)
  - Epistaxis [Unknown]
  - Thrombocytopenia [Recovered/Resolved]
  - Spontaneous haematoma [Unknown]

NARRATIVE: CASE EVENT DATE: 20140506
